FAERS Safety Report 9651394 (Version 2)
Quarter: 2013Q4

REPORT INFORMATION
  Report Type: Spontaneous
  Country: FR (occurrence: FR)
  Receive Date: 20131029
  Receipt Date: 20131202
  Transmission Date: 20140711
  Serious: Yes (Death, Hospitalization)
  Sender: FDA-Public Use
  Company Number: FR-ROCHE-1295401

PATIENT
  Age: 78 Year
  Sex: Male
  Weight: 80 kg

DRUGS (10)
  1. MABTHERA [Suspect]
     Indication: RHEUMATOID ARTHRITIS
     Route: 042
     Dates: start: 20100506
  2. ACTONEL [Concomitant]
  3. METOJECT [Concomitant]
     Route: 065
  4. CORTANCYL [Concomitant]
     Route: 065
  5. OGAST [Concomitant]
     Route: 065
  6. AMLOR [Concomitant]
  7. SPIRIVA [Concomitant]
  8. METFORMIN [Concomitant]
     Route: 065
  9. OROCAL D3 [Concomitant]
  10. DOLIPRANE [Concomitant]

REACTIONS (3)
  - Ventricular tachycardia [Fatal]
  - Respiratory distress [Fatal]
  - Primary mediastinal large B-cell lymphoma [Fatal]
